FAERS Safety Report 10011382 (Version 1)
Quarter: 2014Q1

REPORT INFORMATION
  Report Type: Spontaneous
  Country: JP (occurrence: None)
  Receive Date: 20140312
  Receipt Date: 20140312
  Transmission Date: 20141002
  Serious: Yes (Death, Hospitalization)
  Sender: FDA-Public Use
  Company Number: FK201400791

PATIENT
  Age: 68 Year
  Sex: Female

DRUGS (3)
  1. DOXORUBICIN [Suspect]
     Indication: BREAST CANCER
     Dosage: 50 MG/M2, ON DAY 1
  2. FLOUROURACIL [Suspect]
     Indication: BREAST CANCER
     Dosage: 500 MG/M2, ON DAY
  3. CYCLOPHOSPHAMIDE [Suspect]
     Indication: BREAST CANCER
     Dosage: 500 MG/M2, ON DAY

REACTIONS (2)
  - Hepatitis B [None]
  - Hepatic failure [None]
